FAERS Safety Report 26063658 (Version 1)
Quarter: 2025Q4

REPORT INFORMATION
  Report Type: Spontaneous
  Country: US (occurrence: US)
  Receive Date: 20251119
  Receipt Date: 20251119
  Transmission Date: 20260118
  Serious: No
  Sender: Kenvue
  Company Number: US-KENVUE-20251103873

PATIENT
  Sex: Male

DRUGS (3)
  1. MENS ROGAINE [Suspect]
     Active Substance: MINOXIDIL
     Indication: Alopecia
     Dosage: FILLING THE EYE DROPPER TO COVER THE HAIR LOSS AD GAVE ME  AN EXTRA DOSAGE SOMETIMES, ONCE A DAY DAILY
     Dates: start: 2025
  2. MENS ROGAINE [Suspect]
     Active Substance: MINOXIDIL
     Indication: Accidental exposure to product
  3. Untangled [Concomitant]
     Indication: Product used for unknown indication
     Route: 065

REACTIONS (4)
  - Inappropriate schedule of product administration [Unknown]
  - Accidental exposure to product [Unknown]
  - Incorrect dose administered [Unknown]
  - Wrong technique in product usage process [Unknown]

NARRATIVE: CASE EVENT DATE: 20250101
